FAERS Safety Report 9559217 (Version 1)
Quarter: 2013Q3

REPORT INFORMATION
  Report Type: Spontaneous
  Country: US (occurrence: None)
  Receive Date: 20130906
  Receipt Date: 20130906
  Transmission Date: 20140515
  Serious: Yes (Hospitalization)
  Sender: FDA-Public Use
  Company Number: 163-POMAL-13064456

PATIENT
  Age: 68 Year
  Sex: Male

DRUGS (9)
  1. POMALYST [Suspect]
     Indication: PLASMA CELL MYELOMA
     Dosage: 4 MG, 21 IN 21 D, PO
     Route: 048
     Dates: start: 20130606
  2. ACYCLOVIR  (ACICLOVIR) [Concomitant]
  3. AMLODIPINE BESYLATE (AMLODIPINE BESILATE) [Concomitant]
  4. ASPIRIN ADULT LOW STRENGTH (ACETYLSALICYLIC ACID) [Concomitant]
  5. CITALOPRAM HYDROBROMIDE (CITALOPRAM HYDROBROMIDEZ) [Concomitant]
  6. CRESTOR (ROSUVASTATIN) [Concomitant]
  7. DEXAMETHASONE (DEXAMETHASONE) [Concomitant]
  8. ENALAPRIL MALEATE (ENALAPRIL MALEATEZ) [Concomitant]
  9. GABAPENTIN ((GABAPENTIN) [Concomitant]

REACTIONS (1)
  - Oedema [None]
